FAERS Safety Report 5277108-4 (Version None)
Quarter: 2007Q1

REPORT INFORMATION
  Report Type: 
  Country: None (occurrence: None)
  Receive Date: 20070327
  Receipt Date: 20070324
  Transmission Date: 20070707
  Serious: Yes (Hospitalization)
  Sender: FDA-Public Use
  Company Number: US-GLAXOSMITHKLINE-Z0000312A

PATIENT
  Age: 76 Year
  Sex: Female
  Weight: 77.3 kg

DRUGS (2)
  1. LAPATINIB [Suspect]
     Dosage: 1000MG PER DAY
     Route: 048
     Dates: start: 20061020, end: 20070208
  2. TRASTUZUMAB [Suspect]
     Route: 042
     Dates: start: 20061020

REACTIONS (1)
  - FEBRILE NEUTROPENIA [None]
